FAERS Safety Report 7312622-9 (Version None)
Quarter: 2011Q1

REPORT INFORMATION
  Report Type: 
  Country: None (occurrence: None)
  Receive Date: 20110224
  Receipt Date: 20110215
  Transmission Date: 20110831
  Serious: Yes (Hospitalization)
  Sender: FDA-Public Use
  Company Number: US-ASTRAZENECA-2011SE08731

PATIENT
  Age: 57 Year
  Sex: Female

DRUGS (9)
  1. SYMBICORT [Suspect]
     Indication: CHRONIC OBSTRUCTIVE PULMONARY DISEASE
     Dosage: 160/4.5 UG 2
     Route: 055
     Dates: start: 20040101
  2. MAG [Concomitant]
  3. CELEXA [Concomitant]
  4. FLUID PILL [Concomitant]
  5. ALBUTEROL [Concomitant]
  6. BUDESONIDE [Concomitant]
  7. SYNTHROID [Concomitant]
  8. POTASSIUM [Concomitant]
  9. SYMBICORT [Suspect]
     Indication: ASTHMA
     Dosage: 160/4.5 UG 2
     Route: 055
     Dates: start: 20040101

REACTIONS (1)
  - PNEUMONIA [None]
